FAERS Safety Report 6570882-6 (Version None)
Quarter: 2010Q1

REPORT INFORMATION
  Report Type: 
  Country: None (occurrence: None)
  Receive Date: 20100204
  Receipt Date: 20100129
  Transmission Date: 20100710
  Serious: Yes (Other)
  Sender: FDA-Public Use
  Company Number: DE-WYE-G05463210

PATIENT

DRUGS (2)
  1. TREVILOR RETARD [Suspect]
     Dosage: UNKNOWN DAILY DOSE FOR APPROXIMATELY 2 YEARS, DOSE REDUCTION TO 37.5 MG PER DAY ON UNKN DATE
     Route: 048
  2. TRAMAL [Interacting]

REACTIONS (4)
  - DEEP VEIN THROMBOSIS [None]
  - DRUG INTERACTION [None]
  - DRUG WITHDRAWAL SYNDROME [None]
  - JOINT SWELLING [None]
